FAERS Safety Report 14077810 (Version 1)
Quarter: 2017Q4

REPORT INFORMATION
  Report Type: Spontaneous
  Country: US (occurrence: US)
  Receive Date: 20171012
  Receipt Date: 20171012
  Transmission Date: 20180321
  Serious: No
  Sender: FDA-Public Use
  Company Number: US-BRISTOL-MYERS SQUIBB COMPANY-BMS-2017-091002

PATIENT
  Sex: Male
  Weight: 90.71 kg

DRUGS (1)
  1. OPDIVO [Suspect]
     Active Substance: NIVOLUMAB
     Indication: HODGKIN^S DISEASE
     Dosage: UNK, Q2WK
     Route: 042
     Dates: start: 2017

REACTIONS (2)
  - Red blood cell count decreased [Unknown]
  - White blood cell count decreased [Unknown]
